FAERS Safety Report 9519722 (Version 2)
Quarter: 2014Q1

REPORT INFORMATION
  Report Type: Spontaneous
  Country: JP (occurrence: JP)
  Receive Date: 20130912
  Receipt Date: 20140102
  Transmission Date: 20141002
  Serious: Yes (Hospitalization, Other)
  Sender: FDA-Public Use
  Company Number: JP-PFIZER INC-2013255197

PATIENT
  Age: 89 Year
  Sex: Male

DRUGS (2)
  1. AZULFIDINE EN [Suspect]
     Dosage: 500 MG/DAY
     Dates: start: 20130409
  2. PREDNISOLONE [Concomitant]
     Indication: RHEUMATOID ARTHRITIS
     Dosage: 10 MG/DAY
     Dates: start: 20130409

REACTIONS (1)
  - Encephalitis [Recovering/Resolving]
